FAERS Safety Report 8573654-6 (Version None)
Quarter: 2012Q3

REPORT INFORMATION
  Report Type: 
  Country: None (occurrence: None)
  Receive Date: 20120806
  Receipt Date: 20120725
  Transmission Date: 20120928
  Serious: Yes (Hospitalization)
  Sender: FDA-Public Use
  Company Number: US-ROCHE-1093155

PATIENT
  Sex: Female

DRUGS (1)
  1. RANIBIZUMAB [Suspect]
     Indication: AGE-RELATED MACULAR DEGENERATION
     Dosage: LATEST DOSE PRIOR TO SAE:20/JUL/2012
     Route: 050

REACTIONS (4)
  - EYE OPERATION [None]
  - EYE COLOUR CHANGE [None]
  - EYE PAIN [None]
  - EYE DISORDER [None]
